FAERS Safety Report 6808455-X (Version None)
Quarter: 2010Q2

REPORT INFORMATION
  Report Type: 
  Country: None (occurrence: None)
  Receive Date: 20100629
  Receipt Date: 20090624
  Transmission Date: 20101027
  Serious: No
  Sender: FDA-Public Use
  Company Number: US-PFIZER INC-2009232893

PATIENT
  Sex: Male
  Weight: 61.2 kg

DRUGS (5)
  1. VIAGRA [Suspect]
     Dosage: AS NEEDED
     Route: 048
     Dates: start: 20060101
  2. ACETYLSALICYLIC ACID [Concomitant]
     Dosage: UNK
  3. PRO-BANTHINE [Concomitant]
     Dosage: UNK
  4. ZOCOR [Concomitant]
     Dosage: UNK
  5. METOPROLOL [Concomitant]
     Dosage: UNK

REACTIONS (2)
  - DYSPEPSIA [None]
  - VISION BLURRED [None]
